FAERS Safety Report 15277586 (Version 2)
Quarter: 2018Q3

REPORT INFORMATION
  Report Type: Spontaneous
  Country: US (occurrence: US)
  Receive Date: 20180814
  Receipt Date: 20180815
  Transmission Date: 20181010
  Serious: No
  Sender: FDA-Public Use
  Company Number: US-SA-2018SA224131

PATIENT
  Sex: Female

DRUGS (6)
  1. XELJANZ XR [Concomitant]
     Active Substance: TOFACITINIB CITRATE
     Dosage: 5 MG, BID
     Route: 048
  2. PLAQUENIL [Suspect]
     Active Substance: HYDROXYCHLOROQUINE SULFATE
     Indication: RHEUMATOID ARTHRITIS
  3. RITUXAN [Concomitant]
     Active Substance: RITUXIMAB
     Indication: ANAPHYLACTIC REACTION
     Dosage: UNK
     Dates: start: 201711, end: 201712
  4. ENBREL [Concomitant]
     Active Substance: ETANERCEPT
     Indication: URTICARIA
     Dosage: UNK
     Dates: start: 201805, end: 201806
  5. ARAVA [Suspect]
     Active Substance: LEFLUNOMIDE
     Indication: RHEUMATOID ARTHRITIS
     Dosage: UNK
     Dates: start: 20091021, end: 2017
  6. ARAVA [Suspect]
     Active Substance: LEFLUNOMIDE
     Dosage: UNK
     Dates: start: 2017, end: 20180123

REACTIONS (1)
  - Treatment failure [Unknown]
